FAERS Safety Report 6981602-5 (Version None)
Quarter: 2010Q3

REPORT INFORMATION
  Report Type: 
  Country: None (occurrence: None)
  Receive Date: 20100914
  Receipt Date: 20100830
  Transmission Date: 20110219
  Serious: Yes (Other)
  Sender: FDA-Public Use
  Company Number: US-GENENTECH-306257

PATIENT

DRUGS (4)
  1. RITUXIMAB [Suspect]
     Indication: LYMPHOMA
     Dosage: 375 MG/M2, UNK
     Route: 042
  2. GEMCITABINE [Suspect]
     Indication: LYMPHOMA
     Dosage: 1000 MG/M2, UNK
     Route: 042
  3. CARBOPLATIN [Suspect]
     Indication: LYMPHOMA
     Dosage: UNK
     Route: 042
  4. DEXAMETASONE [Suspect]
     Indication: LYMPHOMA
     Dosage: UNK
     Route: 065

REACTIONS (26)
  - ABDOMINAL PAIN [None]
  - BREAST CANCER [None]
  - CHEST PAIN [None]
  - COMPLICATIONS OF TRANSPLANT SURGERY [None]
  - DEPRESSION [None]
  - FATIGUE [None]
  - GASTROINTESTINAL DISORDER [None]
  - HAEMOGLOBIN ABNORMAL [None]
  - HAEMORRHAGE [None]
  - HYPERSENSITIVITY [None]
  - HYPOTENSION [None]
  - INFECTION [None]
  - LABORATORY TEST ABNORMAL [None]
  - MYELODYSPLASTIC SYNDROME [None]
  - NAUSEA [None]
  - NERVOUS SYSTEM DISORDER [None]
  - NEUTROPHIL COUNT ABNORMAL [None]
  - PRESYNCOPE [None]
  - PROCTALGIA [None]
  - PROSTATE CANCER [None]
  - PULMONARY EMBOLISM [None]
  - SQUAMOUS CELL CARCINOMA OF SKIN [None]
  - THROMBOCYTOPENIA [None]
  - THROMBOSIS IN DEVICE [None]
  - TOOTHACHE [None]
  - TUMOUR PAIN [None]
